FAERS Safety Report 7987052-7 (Version None)
Quarter: 2011Q4

REPORT INFORMATION
  Report Type: 
  Country: None (occurrence: None)
  Receive Date: 20111216
  Receipt Date: 20110922
  Transmission Date: 20120403
  Serious: Yes (Other)
  Sender: FDA-Public Use
  Company Number: US-BRISTOL-MYERS SQUIBB COMPANY-16091431

PATIENT
  Age: 39 Year
  Sex: Male
  Weight: 93 kg

DRUGS (7)
  1. FISH OIL [Concomitant]
  2. PRISTIQ [Suspect]
     Indication: DEPRESSION
     Dosage: TABLETS. 100 MG INTO FOUR PARTS AND TAKING ONE PART DAILY
     Route: 048
     Dates: start: 20100101
  3. ABILIFY [Suspect]
     Indication: BIPOLAR DISORDER
  4. NIASPAN [Suspect]
     Indication: BLOOD TRIGLYCERIDES ABNORMAL
  5. PRISTIQ [Suspect]
     Indication: BIPOLAR DISORDER
     Dosage: TABLETS. 100 MG INTO FOUR PARTS AND TAKING ONE PART DAILY
     Route: 048
     Dates: start: 20100101
  6. VITAMIN TAB [Concomitant]
  7. REBIF [Suspect]

REACTIONS (4)
  - ANXIETY [None]
  - BLOOD GLUCOSE ABNORMAL [None]
  - BLOOD TRIGLYCERIDES INCREASED [None]
  - ABDOMINAL DISCOMFORT [None]
